FAERS Safety Report 20954318 (Version 2)
Quarter: 2022Q2

REPORT INFORMATION
  Report Type: Spontaneous
  Country: JP (occurrence: JP)
  Receive Date: 20220614
  Receipt Date: 20220623
  Transmission Date: 20220720
  Serious: Yes (Death, Hospitalization, Other)
  Sender: FDA-Public Use
  Company Number: JP-ALXN-A202206733

PATIENT
  Age: 80 Year
  Sex: Male

DRUGS (5)
  1. ULTOMIRIS [Suspect]
     Active Substance: RAVULIZUMAB-CWVZ
     Indication: Paroxysmal nocturnal haemoglobinuria
     Dosage: 3000 MG, Q56
     Route: 042
     Dates: start: 202011, end: 20211020
  2. ULTOMIRIS [Suspect]
     Active Substance: RAVULIZUMAB-CWVZ
     Indication: Paroxysmal nocturnal haemoglobinuria
     Dosage: 3000 MG, Q56
     Route: 042
     Dates: start: 20211216, end: 20220407
  3. PREDONINE [Concomitant]
     Active Substance: PREDNISOLONE
     Indication: Paroxysmal nocturnal haemoglobinuria
     Dosage: 40 MG, QD
     Route: 048
     Dates: start: 202204, end: 202205
  4. PREDONINE [Concomitant]
     Active Substance: PREDNISOLONE
     Indication: Myelodysplastic syndrome
  5. PREGABALIN [Concomitant]
     Active Substance: PREGABALIN
     Indication: Neuropathy peripheral
     Dosage: 25 MG, QD
     Route: 048
     Dates: start: 2019, end: 202205

REACTIONS (2)
  - Multiple organ dysfunction syndrome [Fatal]
  - Pneumococcal infection [Fatal]

NARRATIVE: CASE EVENT DATE: 20220520
